FAERS Safety Report 5270811-1 (Version None)
Quarter: 2007Q1

REPORT INFORMATION
  Report Type: 
  Country: None (occurrence: None)
  Receive Date: 20070319
  Receipt Date: 20070319
  Transmission Date: 20070707
  Serious: Yes (Death, Life-Threatening, Hospitalization)
  Sender: FDA-Public Use
  Company Number: None

PATIENT
  Age: 57 Year
  Sex: Male
  Weight: 53.3 kg

DRUGS (3)
  1. TAXOTERE [Suspect]
  2. FILGRASTIM [Concomitant]
  3. CEFEPIME [Concomitant]

REACTIONS (3)
  - HYPOTENSION [None]
  - NEUTROPENIA [None]
  - PYREXIA [None]
